FAERS Safety Report 4576748-5 (Version None)
Quarter: 2005Q1

REPORT INFORMATION
  Report Type: 
  Country: None (occurrence: None)
  Receive Date: 20050210
  Receipt Date: 20041206
  Transmission Date: 20050727
  Serious: Yes (Other)
  Sender: FDA-Public Use
  Company Number: PHBS2004BR16373

PATIENT
  Age: 23 Year
  Sex: Female

DRUGS (1)
  1. PARLODEL [Suspect]
     Indication: SUPPRESSED LACTATION
     Dosage: 2.5 MG, ONCE/SINGLE
     Route: 048

REACTIONS (7)
  - CONFUSIONAL STATE [None]
  - DYSPNOEA [None]
  - MALAISE [None]
  - NAUSEA [None]
  - PARAESTHESIA ORAL [None]
  - SWELLING [None]
  - SYNCOPE [None]
